FAERS Safety Report 8142657-8 (Version None)
Quarter: 2012Q1

REPORT INFORMATION
  Report Type: 
  Country: None (occurrence: None)
  Receive Date: 20120216
  Receipt Date: 20120213
  Transmission Date: 20120608
  Serious: Yes (Other)
  Sender: FDA-Public Use
  Company Number: DE-PFIZER INC-2012038118

PATIENT
  Age: 73 Year
  Sex: Male

DRUGS (3)
  1. INSPRA [Suspect]
     Dosage: 25 MG, DAILY
     Dates: start: 20120101
  2. TAMSULOSIN HCL [Interacting]
  3. RAMIPRIL [Interacting]

REACTIONS (2)
  - HYPERTENSIVE CRISIS [None]
  - DRUG INTERACTION [None]
